FAERS Safety Report 14193023 (Version 1)
Quarter: 2017Q4

REPORT INFORMATION
  Report Type: Spontaneous
  Country: US (occurrence: US)
  Receive Date: 20171115
  Receipt Date: 20171115
  Transmission Date: 20180321
  Serious: No
  Sender: FDA-Public Use
  Company Number: US-MYLANLABS-2017M1070346

PATIENT
  Sex: Female
  Weight: 76 kg

DRUGS (1)
  1. LEVETIRACETAM. [Suspect]
     Active Substance: LEVETIRACETAM
     Indication: SEIZURE
     Dosage: UNK
     Route: 048
     Dates: start: 20150101

REACTIONS (1)
  - Headache [Unknown]

NARRATIVE: CASE EVENT DATE: 2015
